FAERS Safety Report 13083077 (Version 2)
Quarter: 2017Q3

REPORT INFORMATION
  Report Type: Report from Study
  Country: RO (occurrence: RO)
  Receive Date: 20170104
  Receipt Date: 20170918
  Transmission Date: 20171127
  Serious: Yes (Death, Other)
  Sender: FDA-Public Use
  Company Number: RO-ROCHE-1874589

PATIENT
  Age: 36 Year
  Sex: Female
  Weight: 65 kg

DRUGS (1)
  1. ZELBORAF [Suspect]
     Active Substance: VEMURAFENIB
     Indication: NEOPLASM MALIGNANT
     Dosage: 4 PILLS
     Route: 048
     Dates: start: 201601, end: 201612

REACTIONS (3)
  - Back pain [Unknown]
  - Death [Fatal]
  - Haematemesis [Unknown]

NARRATIVE: CASE EVENT DATE: 201612
